FAERS Safety Report 18173370 (Version 3)
Quarter: 2020Q4

REPORT INFORMATION
  Report Type: Spontaneous
  Country: US (occurrence: US)
  Receive Date: 20200819
  Receipt Date: 20201023
  Transmission Date: 20210113
  Serious: Yes (Hospitalization, Other)
  Sender: FDA-Public Use
  Company Number: US-GILEAD-2020-0490126

PATIENT
  Age: 57 Year
  Sex: Male
  Weight: 72.11 kg

DRUGS (30)
  1. TRAVATAN [Concomitant]
     Active Substance: TRAVOPROST
  2. COENZYME Q10 [Concomitant]
     Active Substance: DIETARY SUPPLEMENT\UBIDECARENONE
  3. OMEGA 3 HEART HEALTH [Concomitant]
  4. COMBIGAN [Concomitant]
     Active Substance: BRIMONIDINE TARTRATE\TIMOLOL MALEATE
  5. TRUVADA [Suspect]
     Active Substance: EMTRICITABINE\TENOFOVIR DISOPROXIL FUMARATE
     Indication: HIV INFECTION
     Dosage: UNK
     Route: 048
     Dates: start: 200511, end: 201708
  6. EMTRIVA [Concomitant]
     Active Substance: EMTRICITABINE
  7. ISENTRESS [Concomitant]
     Active Substance: RALTEGRAVIR POTASSIUM
  8. PREZISTA [Concomitant]
     Active Substance: DARUNAVIR ETHANOLATE
  9. VIDEX [Concomitant]
     Active Substance: DIDANOSINE
  10. LEXAPRO [Concomitant]
     Active Substance: ESCITALOPRAM OXALATE
  11. PRAVACHOL [Concomitant]
     Active Substance: PRAVASTATIN SODIUM
  12. HUMULIN 70/30 [Concomitant]
     Active Substance: INSULIN HUMAN
  13. APTIVUS [Concomitant]
     Active Substance: TIPRANAVIR
  14. VIRAMUNE [Concomitant]
     Active Substance: NEVIRAPINE
  15. ISOSORBIDE. [Concomitant]
     Active Substance: ISOSORBIDE
  16. ASPRIN [Concomitant]
     Active Substance: ASPIRIN
  17. CALCITROL [CALCITRIOL] [Concomitant]
     Active Substance: CALCITRIOL
  18. FUZEON [Concomitant]
     Active Substance: ENFUVIRTIDE
  19. FINASTERIDE. [Concomitant]
     Active Substance: FINASTERIDE
  20. VIREAD [Suspect]
     Active Substance: TENOFOVIR DISOPROXIL FUMARATE
     Indication: HIV INFECTION
     Dosage: UNK
     Route: 048
     Dates: start: 200206, end: 200510
  21. SODIUM CARBONATE [Concomitant]
     Active Substance: SODIUM CARBONATE
  22. CRIXIVAN [Concomitant]
     Active Substance: INDINAVIR SULFATE
  23. ATIVAN [Concomitant]
     Active Substance: LORAZEPAM
  24. ZETIA [Concomitant]
     Active Substance: EZETIMIBE
  25. NORVIR [Concomitant]
     Active Substance: RITONAVIR
  26. SELZENTRY [Concomitant]
     Active Substance: MARAVIROC
  27. METOPROLOL. [Concomitant]
     Active Substance: METOPROLOL
  28. PHOSPHAS [Concomitant]
  29. COMBIVIR [Concomitant]
     Active Substance: LAMIVUDINE\ZIDOVUDINE
  30. KALETRA [Concomitant]
     Active Substance: LOPINAVIR\RITONAVIR

REACTIONS (17)
  - Osteopenia [Not Recovered/Not Resolved]
  - End stage renal disease [Not Recovered/Not Resolved]
  - Bone metabolism disorder [Not Recovered/Not Resolved]
  - Insomnia [Not Recovered/Not Resolved]
  - Rib fracture [Not Recovered/Not Resolved]
  - Emotional distress [Not Recovered/Not Resolved]
  - Fear [Not Recovered/Not Resolved]
  - Pain [Not Recovered/Not Resolved]
  - Lethargy [Not Recovered/Not Resolved]
  - Weight decreased [Not Recovered/Not Resolved]
  - Drug ineffective [Unknown]
  - Anhedonia [Not Recovered/Not Resolved]
  - Chronic kidney disease [Not Recovered/Not Resolved]
  - Renal failure [Not Recovered/Not Resolved]
  - Anxiety [Not Recovered/Not Resolved]
  - Depression [Not Recovered/Not Resolved]
  - Anger [Not Recovered/Not Resolved]

NARRATIVE: CASE EVENT DATE: 20110516
